FAERS Safety Report 6765022-4 (Version None)
Quarter: 2010Q2

REPORT INFORMATION
  Report Type: 
  Country: None (occurrence: None)
  Receive Date: 20100609
  Receipt Date: 20100318
  Transmission Date: 20101027
  Serious: No
  Sender: FDA-Public Use
  Company Number: 2010006815

PATIENT
  Age: 7 Year
  Sex: Male
  Weight: 24.9478 kg

DRUGS (1)
  1. CHILDREN'S ZYRTEC ALLERGY [Suspect]
     Indication: SNEEZING
     Dosage: 1 CHEWABLE (STRENGTH UNSPECIFIED), ORAL
     Route: 048
     Dates: start: 20100315, end: 20100316

REACTIONS (2)
  - CONDITION AGGRAVATED [None]
  - SNEEZING [None]
